FAERS Safety Report 25281509 (Version 1)
Quarter: 2025Q2

REPORT INFORMATION
  Report Type: Spontaneous
  Country: HU (occurrence: HU)
  Receive Date: 20250508
  Receipt Date: 20250508
  Transmission Date: 20250717
  Serious: Yes (Hospitalization, Other)
  Sender: ACCORD
  Company Number: HU-EMA-DD-20250407-7482831-075214

PATIENT
  Age: 70 Year
  Sex: Female

DRUGS (9)
  1. ZOLEDRONIC ACID [Suspect]
     Active Substance: ZOLEDRONIC ACID
     Indication: Prophylaxis
     Dosage: 4 MG, PER MONTH
  2. CHOLECALCIFEROL [Suspect]
     Active Substance: CHOLECALCIFEROL
     Indication: Supplementation therapy
  3. CALCIUM [Suspect]
     Active Substance: CALCIUM
     Indication: Supplementation therapy
  4. DEXAMETHASONE [Suspect]
     Active Substance: DEXAMETHASONE
     Indication: Plasmacytoma
     Dosage: 40 MG, PER WEEK,
     Dates: start: 20121010
  5. LENALIDOMIDE [Suspect]
     Active Substance: LENALIDOMIDE
     Indication: Plasmacytoma
     Dosage: 25 MG, PER DAY, CYCLE 134
     Dates: start: 20121010
  6. ENOXAPARIN [Concomitant]
     Active Substance: ENOXAPARIN
     Indication: Thrombosis prophylaxis
  7. HERBALS\TURMERIC [Concomitant]
     Active Substance: HERBALS\TURMERIC
  8. LENALIDOMIDE [Suspect]
     Active Substance: LENALIDOMIDE
     Indication: Plasmacytoma
     Dosage: 15 MG, PER DAY,AT CYCLE 50/25 MG DAILY FOR 21/28 DAYS
     Dates: start: 20121010
  9. LENALIDOMIDE [Suspect]
     Active Substance: LENALIDOMIDE
     Indication: Plasmacytoma
     Dosage: 10 MG, PER DAY,AT CYCLE 58
     Dates: start: 20121010

REACTIONS (4)
  - Osteonecrosis of jaw [Unknown]
  - Gastroenteritis clostridial [Unknown]
  - Diarrhoea [Unknown]
  - Hallucination, visual [Unknown]
